FAERS Safety Report 25835136 (Version 1)
Quarter: 2025Q3

REPORT INFORMATION
  Report Type: Spontaneous
  Country: CN (occurrence: CN)
  Receive Date: 20250923
  Receipt Date: 20250923
  Transmission Date: 20251021
  Serious: Yes (Other)
  Sender: AUROBINDO
  Company Number: CN-AUROBINDO-AUR-APL-2025-047408

PATIENT
  Age: 60 Year
  Sex: Female

DRUGS (4)
  1. SERTRALINE [Suspect]
     Active Substance: SERTRALINE HYDROCHLORIDE
     Indication: Depressive symptom
     Route: 065
  2. CILOSTAZOL [Suspect]
     Active Substance: CILOSTAZOL
     Indication: Cerebral small vessel ischaemic disease
     Route: 065
  3. DONEPEZIL [Concomitant]
     Active Substance: DONEPEZIL
     Indication: Memory impairment
     Route: 065
  4. QUETIAPINE [Concomitant]
     Active Substance: QUETIAPINE
     Indication: Hallucination, visual
     Route: 065

REACTIONS (3)
  - Epilepsy [Unknown]
  - Disease progression [Unknown]
  - Cerebral infarction [Unknown]
